FAERS Safety Report 15100644 (Version 1)
Quarter: 2018Q3

REPORT INFORMATION
  Report Type: Spontaneous
  Country: US (occurrence: US)
  Receive Date: 20180703
  Receipt Date: 20180703
  Transmission Date: 20181010
  Serious: Yes (Other)
  Sender: FDA-Public Use
  Company Number: US-ROCHE-2147825

PATIENT
  Sex: Female
  Weight: 93.52 kg

DRUGS (5)
  1. ASPIRIN. [Concomitant]
     Active Substance: ASPIRIN
     Route: 065
  2. ACTEMRA [Suspect]
     Active Substance: TOCILIZUMAB
     Indication: RHEUMATOID ARTHRITIS
     Route: 058
     Dates: start: 2018
  3. PREDNISONE. [Concomitant]
     Active Substance: PREDNISONE
     Dosage: 5 TO 10 MG
     Route: 065
  4. RITUXAN [Suspect]
     Active Substance: RITUXIMAB
     Indication: RHEUMATOID ARTHRITIS
     Route: 065
  5. PREDNISONE. [Concomitant]
     Active Substance: PREDNISONE
     Route: 065

REACTIONS (8)
  - Gastric ulcer [Unknown]
  - Gastritis [Unknown]
  - Malaise [Unknown]
  - Dizziness [Unknown]
  - Anaemia [Unknown]
  - Hypotension [Unknown]
  - Tachycardia [Unknown]
  - Treatment failure [Unknown]
